FAERS Safety Report 24177067 (Version 1)
Quarter: 2024Q3

REPORT INFORMATION
  Report Type: Spontaneous
  Country: US (occurrence: US)
  Receive Date: 20240806
  Receipt Date: 20240806
  Transmission Date: 20241016
  Serious: No
  Sender: AMNEAL
  Company Number: US-AMNEAL-2023-AMRX-02852

PATIENT
  Sex: Male
  Weight: 90.7 kg

DRUGS (2)
  1. BACLOFEN [Suspect]
     Active Substance: BACLOFEN
     Indication: Product used for unknown indication
     Dosage: 500.05426 MCG/DAY
     Route: 037
  2. BACLOFEN [Suspect]
     Active Substance: BACLOFEN
     Dosage: 625.87436 MCG/DAY
     Route: 037

REACTIONS (4)
  - Pain [Recovered/Resolved with Sequelae]
  - Paranoia [Unknown]
  - Muscle spasticity [Recovered/Resolved with Sequelae]
  - Drug ineffective [Unknown]
